FAERS Safety Report 5919856-6 (Version None)
Quarter: 2008Q4

REPORT INFORMATION
  Report Type: 
  Country: None (occurrence: None)
  Receive Date: 20081015
  Receipt Date: 20081004
  Transmission Date: 20090506
  Serious: Yes (Other)
  Sender: FDA-Public Use
  Company Number: US-PFIZER INC-2008084563

PATIENT
  Sex: Female
  Weight: 66.2 kg

DRUGS (10)
  1. CHANTIX [Suspect]
     Indication: SMOKING CESSATION THERAPY
     Dates: start: 20071101
  2. CELEXA [Suspect]
     Indication: ANXIETY
     Dates: start: 20080101, end: 20080928
  3. CELEXA [Suspect]
     Indication: DEPRESSION
  4. PLAVIX [Concomitant]
  5. NORCO [Concomitant]
  6. VYTORIN [Concomitant]
  7. CARTIA XT [Concomitant]
  8. SOMA [Concomitant]
  9. OXYCONTIN [Concomitant]
  10. LYRICA [Concomitant]

REACTIONS (6)
  - ANXIETY [None]
  - DECREASED INTEREST [None]
  - DEPRESSION [None]
  - DYSGEUSIA [None]
  - MEDICATION ERROR [None]
  - STRESS [None]
